FAERS Safety Report 6503122-4 (Version None)
Quarter: 2009Q4

REPORT INFORMATION
  Report Type: 
  Country: None (occurrence: None)
  Receive Date: 20091217
  Receipt Date: 20091211
  Transmission Date: 20100525
  Serious: Yes (Death, Hospitalization)
  Sender: FDA-Public Use
  Company Number: US-ROCHE-674528

PATIENT
  Sex: Female

DRUGS (6)
  1. MYCOPHENOLATE MOFETIL [Suspect]
     Indication: SYSTEMIC LUPUS ERYTHEMATOSUS
     Dosage: FREQUENCY, ROUTE, FORM UNSPECIFIED.
     Route: 065
     Dates: start: 20081212
  2. BLINDED ABATACEPT [Suspect]
     Indication: SYSTEMIC LUPUS ERYTHEMATOSUS
     Dosage: FREQUENCY UNSPECIFIED.
     Route: 042
     Dates: start: 20090121
  3. PREDNISONE [Suspect]
     Indication: SYSTEMIC LUPUS ERYTHEMATOSUS
     Dosage: DOSE, ROUTE, FREQUENCY UNSPECIFIED
     Route: 065
  4. ENALAPRYL [Concomitant]
     Dates: start: 20080606, end: 20091120
  5. RANITIDINE [Concomitant]
     Dosage: STOP DATE:2009
     Dates: start: 20080606
  6. CALCIUM CITRATE [Concomitant]
     Dosage: STOP DATE:2009
     Dates: start: 20080606

REACTIONS (3)
  - JOINT DISLOCATION [None]
  - SEPSIS [None]
  - SYSTEMIC LUPUS ERYTHEMATOSUS [None]
